FAERS Safety Report 11868098 (Version 1)
Quarter: 2015Q4

REPORT INFORMATION
  Report Type: Spontaneous
  Country: BE (occurrence: BE)
  Receive Date: 20151224
  Receipt Date: 20151224
  Transmission Date: 20160305
  Serious: Yes (Hospitalization, Other)
  Sender: FDA-Public Use
  Company Number: BE-ASTRAZENECA-2015SE50778

PATIENT
  Age: 74 Year
  Sex: Male
  Weight: 81 kg

DRUGS (8)
  1. ASAFLOW [Suspect]
     Active Substance: ASPIRIN
     Route: 065
     Dates: start: 2000, end: 20140912
  2. BRILIQUE [Suspect]
     Active Substance: TICAGRELOR
     Indication: STENT PLACEMENT
     Route: 048
     Dates: start: 20140125, end: 20140912
  3. BRILIQUE [Suspect]
     Active Substance: TICAGRELOR
     Indication: ANGIOPLASTY
     Route: 048
     Dates: start: 20140125, end: 20140912
  4. COVERSYL [Concomitant]
     Active Substance: PERINDOPRIL
     Indication: HYPERTENSION
     Dates: start: 2006
  5. BRILIQUE [Suspect]
     Active Substance: TICAGRELOR
     Indication: CORONARY ANGIOPLASTY
     Route: 048
     Dates: start: 20140125, end: 20140912
  6. AMARYLLE [Concomitant]
     Dates: start: 2004
  7. GLUCOPHAGE [Concomitant]
     Active Substance: METFORMIN HYDROCHLORIDE
     Dates: start: 2000
  8. BISOPROLOL [Concomitant]
     Active Substance: BISOPROLOL
     Dates: start: 20140125

REACTIONS (4)
  - Road traffic accident [Unknown]
  - Subdural haematoma [Recovered/Resolved]
  - Traumatic intracranial haemorrhage [Recovered/Resolved]
  - Head injury [Unknown]

NARRATIVE: CASE EVENT DATE: 20140901
